FAERS Safety Report 4677027-8 (Version None)
Quarter: 2005Q2

REPORT INFORMATION
  Report Type: 
  Country: None (occurrence: None)
  Receive Date: 20050526
  Receipt Date: 20050331
  Transmission Date: 20051028
  Serious: Yes (Other)
  Sender: FDA-Public Use
  Company Number: WAES 0504USA00090

PATIENT
  Sex: Male

DRUGS (3)
  1. VYTORIN [Suspect]
     Indication: BLOOD CHOLESTEROL INCREASED
     Dosage: 10-20 MG DAILY; PO (SEE IMAGE)
     Route: 048
     Dates: start: 20050225, end: 20050301
  2. VYTORIN [Suspect]
     Indication: BLOOD CHOLESTEROL INCREASED
     Dosage: 10-20 MG DAILY; PO (SEE IMAGE)
     Route: 048
     Dates: start: 20050301
  3. AVAPRO [Concomitant]

REACTIONS (2)
  - DIARRHOEA [None]
  - MEDICATION ERROR [None]
